FAERS Safety Report 23970437 (Version 1)
Quarter: 2024Q2

REPORT INFORMATION
  Report Type: Report from Study
  Country: US (occurrence: US)
  Receive Date: 20240613
  Receipt Date: 20240613
  Transmission Date: 20240716
  Serious: Yes (Hospitalization)
  Sender: FDA-Public Use
  Company Number: US-GILEAD-2024-0676271

PATIENT
  Age: 57 Year
  Sex: Female

DRUGS (1)
  1. SACITUZUMAB GOVITECAN-HZIY [Suspect]
     Active Substance: SACITUZUMAB GOVITECAN-HZIY
     Indication: Breast cancer female
     Dosage: INFUSE 603MG INT OVER 1 HOUR ON DAY 1 + 8 EVERY 21 DAYS
     Route: 042
     Dates: start: 20240426

REACTIONS (1)
  - Illness [Unknown]
